FAERS Safety Report 21208168 (Version 1)
Quarter: 2022Q3

REPORT INFORMATION
  Report Type: Other
  Country: GB (occurrence: None)
  Receive Date: 20220812
  Receipt Date: 20220812
  Transmission Date: 20221027
  Serious: Yes (Other)
  Sender: FDA-Public Use
  Company Number: GB-ROCHE-3118457

PATIENT
  Sex: Female

DRUGS (1)
  1. TOCILIZUMAB [Suspect]
     Active Substance: TOCILIZUMAB
     Indication: Rheumatoid arthritis
     Dosage: ONE ONCE WEEKLY
     Route: 058
     Dates: start: 20210224

REACTIONS (2)
  - COVID-19 [Unknown]
  - Product temperature excursion issue [Unknown]
